FAERS Safety Report 18198093 (Version 3)
Quarter: 2020Q3

REPORT INFORMATION
  Report Type: Spontaneous
  Country: US (occurrence: US)
  Receive Date: 20200826
  Receipt Date: 20200904
  Transmission Date: 20201103
  Serious: Yes (Hospitalization, Other)
  Sender: FDA-Public Use
  Company Number: NVSC2020US231220

PATIENT
  Age: 17 Year
  Sex: Female
  Weight: 88 kg

DRUGS (5)
  1. ADAKVEO [Suspect]
     Active Substance: CRIZANLIZUMAB-TMCA
     Dosage: UNK UNK, QMO
     Route: 042
     Dates: start: 20200819
  2. ATENOLOL. [Concomitant]
     Active Substance: ATENOLOL
     Indication: PRODUCT USED FOR UNKNOWN INDICATION
     Dosage: UNK
     Route: 065
  3. ADAKVEO [Suspect]
     Active Substance: CRIZANLIZUMAB-TMCA
     Dosage: 5 MG/KG, QMO
     Route: 042
     Dates: start: 20200717, end: 20200801
  4. ADAKVEO [Suspect]
     Active Substance: CRIZANLIZUMAB-TMCA
     Dosage: UNK UNK, QMO
     Route: 042
     Dates: start: 20200716
  5. ADAKVEO [Suspect]
     Active Substance: CRIZANLIZUMAB-TMCA
     Indication: SICKLE CELL ANAEMIA WITH CRISIS
     Dosage: UNK UNK, QMO
     Route: 042
     Dates: start: 20200624

REACTIONS (6)
  - Pyrexia [Unknown]
  - Lung infiltration [Unknown]
  - Infusion related reaction [Recovered/Resolved]
  - Acute chest syndrome [Recovered/Resolved]
  - SARS-CoV-2 test positive [Unknown]
  - Infusion related reaction [Recovered/Resolved]

NARRATIVE: CASE EVENT DATE: 20200716
